FAERS Safety Report 25457791 (Version 1)
Quarter: 2025Q2

REPORT INFORMATION
  Report Type: Spontaneous
  Country: US (occurrence: US)
  Receive Date: 20250619
  Receipt Date: 20250619
  Transmission Date: 20250717
  Serious: No
  Sender: SANDOZ
  Company Number: US-SANDOZ-SDZ2025US042136

PATIENT
  Sex: Female

DRUGS (1)
  1. AMANTADINE [Suspect]
     Active Substance: AMANTADINE
     Indication: Fatigue
     Route: 065

REACTIONS (2)
  - Drug ineffective [Unknown]
  - Therapy cessation [Unknown]
